FAERS Safety Report 7344905-0 (Version None)
Quarter: 2011Q1

REPORT INFORMATION
  Report Type: 
  Country: None (occurrence: None)
  Receive Date: 20110310
  Receipt Date: 20110301
  Transmission Date: 20110831
  Serious: Yes (Other)
  Sender: FDA-Public Use
  Company Number: JP-PFIZER INC-2011036975

PATIENT
  Age: 43 Year
  Sex: Female

DRUGS (1)
  1. NASANYL [Suspect]
     Dosage: UNK
     Route: 045

REACTIONS (1)
  - SYNCOPE [None]
